FAERS Safety Report 12542830 (Version 6)
Quarter: 2018Q2

REPORT INFORMATION
  Report Type: Report from Study
  Country: None (occurrence: GB)
  Receive Date: 20160709
  Receipt Date: 20180525
  Transmission Date: 20180711
  Serious: Yes (Death, Hospitalization)
  Sender: FDA-Public Use
  Company Number: GB-ABBVIE-16K-167-1671758-00

PATIENT
  Age: 51 Year
  Sex: Female
  Weight: 75 kg

DRUGS (2)
  1. HUMIRA [Suspect]
     Active Substance: ADALIMUMAB
     Route: 058
     Dates: end: 201604
  2. HUMIRA [Suspect]
     Active Substance: ADALIMUMAB
     Indication: PSORIASIS
     Route: 058
     Dates: start: 20140326, end: 20150115

REACTIONS (7)
  - Colon cancer metastatic [Fatal]
  - Hepatic lesion [Recovered/Resolved]
  - Post procedural infection [Unknown]
  - Escherichia infection [Unknown]
  - Gastrointestinal wall thickening [Recovered/Resolved with Sequelae]
  - Colon cancer [Fatal]
  - Inflammatory marker increased [Unknown]

NARRATIVE: CASE EVENT DATE: 2016
